FAERS Safety Report 9688170 (Version 1)
Quarter: 2013Q4

REPORT INFORMATION
  Report Type: Spontaneous
  Country: IN (occurrence: IN)
  Receive Date: 20131114
  Receipt Date: 20131114
  Transmission Date: 20140711
  Serious: Yes (Life-Threatening)
  Sender: FDA-Public Use
  Company Number: IN-ASTRAZENECA-2013SE83153

PATIENT
  Age: 60 Year
  Sex: Female
  Weight: 80 kg

DRUGS (8)
  1. BRILINTA [Suspect]
     Indication: ACUTE CORONARY SYNDROME
     Route: 048
     Dates: start: 20131105, end: 20131105
  2. ASPIRIN [Suspect]
     Indication: ACUTE CORONARY SYNDROME
     Route: 048
     Dates: start: 20131105, end: 20131105
  3. HEPARIN [Suspect]
     Route: 042
  4. NOVASTATIN [Concomitant]
     Indication: ACUTE CORONARY SYNDROME
  5. CLOPITAB [Concomitant]
     Indication: ACUTE CORONARY SYNDROME
  6. VOGLIBOSE [Concomitant]
  7. DOLO [Concomitant]
  8. ENDOMETACIN [Concomitant]

REACTIONS (2)
  - Hypotension [Unknown]
  - Cardiac tamponade [Unknown]
